FAERS Safety Report 9740659 (Version 1)
Quarter: 2013Q4

REPORT INFORMATION
  Report Type: Spontaneous
  Country: US (occurrence: US)
  Receive Date: 20131209
  Receipt Date: 20131209
  Transmission Date: 20140711
  Serious: No
  Sender: FDA-Public Use
  Company Number: US-BIOGENIDEC-2013BI093096

PATIENT
  Sex: Female

DRUGS (13)
  1. TECFIDERA [Suspect]
     Indication: MULTIPLE SCLEROSIS
     Route: 048
     Dates: start: 20130812
  2. AMITRIPTYLINE HCL [Concomitant]
  3. AMPYRA [Concomitant]
  4. ASPIRIN ADULT LOW STRENGTH [Concomitant]
  5. BACLOFEN [Concomitant]
  6. CALCIUM+D [Concomitant]
  7. DIAZEPAM [Concomitant]
  8. FISH OIL [Concomitant]
  9. FLUTICASONE PROPIONATE [Concomitant]
  10. FOSAMAX [Concomitant]
  11. LEVOTHYROXINE SODIUM [Concomitant]
  12. MACRODANTIN [Concomitant]
  13. PRAVASTIN SODIUM [Concomitant]

REACTIONS (1)
  - Dyspepsia [Unknown]
